FAERS Safety Report 21498832 (Version 1)
Quarter: 2022Q4

REPORT INFORMATION
  Report Type: Report from Study
  Country: BY (occurrence: BY)
  Receive Date: 20221024
  Receipt Date: 20221024
  Transmission Date: 20230112
  Serious: Yes (Death)
  Sender: FDA-Public Use
  Company Number: BY-MYLANLABS-2022M1116244

PATIENT
  Age: 70 Year
  Sex: Male
  Weight: 59.7 kg

DRUGS (8)
  1. PRETOMANID [Suspect]
     Active Substance: PRETOMANID
     Indication: Product used for unknown indication
     Dosage: 200 MILLIGRAM, QD
     Route: 048
     Dates: start: 20220915, end: 20221010
  2. BEDAQUILINE [Suspect]
     Active Substance: BEDAQUILINE
     Indication: Product used for unknown indication
     Dosage: 400 MILLIGRAM, QD
     Route: 048
     Dates: start: 20220915, end: 20221010
  3. LINEZOLID [Suspect]
     Active Substance: LINEZOLID
     Indication: Product used for unknown indication
     Dosage: 600 MILLIGRAM, QD
     Route: 048
     Dates: start: 20220915, end: 20221010
  4. MOXIFLOXACIN [Suspect]
     Active Substance: MOXIFLOXACIN
     Indication: Product used for unknown indication
     Dosage: 400 MILLIGRAM, QD
     Route: 048
     Dates: start: 20220915, end: 20221010
  5. ASPICARD [Concomitant]
     Indication: Cardiac failure
     Dosage: 75 MILLIGRAM, QD
     Route: 048
     Dates: start: 20220909
  6. ENALAPRIL [Concomitant]
     Active Substance: ENALAPRIL
     Indication: Hypertension
     Dosage: 500 MILLIGRAM, QD
     Route: 048
     Dates: start: 20220909
  7. PROTAMINE [Concomitant]
     Active Substance: PROTAMINE
     Indication: Diabetes mellitus
     Dosage: 8 INTERNATIONAL UNIT, QD
     Route: 058
     Dates: start: 20220909
  8. MONOINSULIN HR [Concomitant]
     Indication: Diabetes mellitus
     Dosage: 18 INTERNATIONAL UNIT, QD
     Route: 058
     Dates: start: 20220915

REACTIONS (5)
  - Cardiac failure acute [Fatal]
  - Asthenia [Unknown]
  - Dysuria [Unknown]
  - General physical health deterioration [Unknown]
  - Drug ineffective [Unknown]

NARRATIVE: CASE EVENT DATE: 20221008
